FAERS Safety Report 16191587 (Version 2)
Quarter: 2019Q2

REPORT INFORMATION
  Report Type: Spontaneous
  Country: JP (occurrence: JP)
  Receive Date: 20190412
  Receipt Date: 20190426
  Transmission Date: 20190711
  Serious: Yes (Other)
  Sender: FDA-Public Use
  Company Number: JP-ROCHE-2302274

PATIENT
  Age: 81 Year
  Sex: Female

DRUGS (8)
  1. COMTAN [Concomitant]
     Active Substance: ENTACAPONE
     Dosage: AFTER BREAKFAST, LUNCH, AND SUPPER
     Route: 048
  2. LINZESS [Concomitant]
     Active Substance: LINACLOTIDE
     Dosage: AFTER THE BREAKFAST
     Route: 048
  3. BIO-THREE [Concomitant]
     Active Substance: HERBALS
     Dosage: AFTER BREAKFAST, LUNCH, AND SUPPER
     Route: 048
  4. NOURIAST [Concomitant]
     Active Substance: ISTRADEFYLLINE
     Dosage: AFTER THE BREAKFAST
     Route: 048
  5. NEUPRO [Concomitant]
     Active Substance: ROTIGOTINE
     Dosage: THE ARM, THE BREAST, AND THE BACK ANYWHERE
     Route: 062
  6. EDIROL [Concomitant]
     Active Substance: ELDECALCITOL
     Dosage: DOSAGE IS UNCERTAIN.
     Route: 048
  7. TAMIFLU [Suspect]
     Active Substance: OSELTAMIVIR PHOSPHATE
     Indication: ANTIVIRAL PROPHYLAXIS
     Dosage: DOSE INTERVAL UNCERTAINTY
     Route: 048
  8. EPADEL [EICOSAPENTAENOIC ACID ETHYL ESTER] [Concomitant]
     Dosage: AFTER BREAKFAST AND SUPPER
     Route: 048

REACTIONS (1)
  - Loss of consciousness [Recovered/Resolved]
